FAERS Safety Report 8545033-9 (Version None)
Quarter: 2012Q3

REPORT INFORMATION
  Report Type: 
  Country: None (occurrence: None)
  Receive Date: 20120727
  Receipt Date: 20120717
  Transmission Date: 20120928
  Serious: Yes (Hospitalization, Disabling)
  Sender: FDA-Public Use
  Company Number: UA-JNJFOC-20120709809

PATIENT
  Sex: Female
  Weight: 84 kg

DRUGS (2)
  1. PALIPERIDONE PALMITATE [Suspect]
     Indication: SCHIZOPHRENIA
     Route: 030
     Dates: start: 20120123, end: 20120521
  2. PALIPERIDONE PALMITATE [Suspect]
     Route: 030
     Dates: start: 20120522

REACTIONS (1)
  - SCHIZOPHRENIA [None]
